FAERS Safety Report 11116731 (Version 1)
Quarter: 2015Q2

REPORT INFORMATION
  Report Type: Spontaneous
  Country: FR (occurrence: FR)
  Receive Date: 20150515
  Receipt Date: 20150515
  Transmission Date: 20150821
  Serious: Yes (Other)
  Sender: FDA-Public Use
  Company Number: FR-MYLANLABS-2015M1016130

PATIENT

DRUGS (2)
  1. ALIMTA [Suspect]
     Active Substance: PEMETREXED DISODIUM
     Indication: LARGE CELL LUNG CANCER METASTATIC
     Dosage: UNK
  2. CARBOPLATIN. [Suspect]
     Active Substance: CARBOPLATIN
     Indication: LARGE CELL LUNG CANCER METASTATIC
     Dosage: UNK

REACTIONS (2)
  - Large cell lung cancer metastatic [Unknown]
  - Disease progression [Unknown]
